FAERS Safety Report 11673285 (Version 1)
Quarter: 2015Q4

REPORT INFORMATION
  Report Type: Report from Study
  Country: US (occurrence: US)
  Receive Date: 20151028
  Receipt Date: 20151028
  Transmission Date: 20160304
  Serious: Yes (Hospitalization, Other)
  Sender: FDA-Public Use
  Company Number: US-TEVA-603040USA

PATIENT
  Age: 61 Year
  Sex: Male

DRUGS (2)
  1. COPAXONE [Suspect]
     Active Substance: GLATIRAMER ACETATE
     Indication: MULTIPLE SCLEROSIS
     Route: 058
     Dates: start: 201405
  2. NITRO [Suspect]
     Active Substance: NITROGLYCERIN
     Indication: CARDIAC DISORDER
     Route: 065

REACTIONS (10)
  - Loss of consciousness [Unknown]
  - Flushing [Unknown]
  - Fall [Unknown]
  - Head injury [Unknown]
  - Erythema [Unknown]
  - Dizziness [Unknown]
  - Hyperhidrosis [Unknown]
  - Paraesthesia [Unknown]
  - Abasia [Unknown]
  - Feeling hot [Unknown]

NARRATIVE: CASE EVENT DATE: 20151016
